FAERS Safety Report 11124339 (Version 1)
Quarter: 2015Q2

REPORT INFORMATION
  Report Type: Spontaneous
  Country: US (occurrence: None)
  Receive Date: 20150518
  Receipt Date: 20150518
  Transmission Date: 20150821
  Serious: Yes (Other)
  Sender: FDA-Public Use
  Company Number: 2015COR00098

PATIENT

DRUGS (1)
  1. ZONISAMIDE (ZONISAMIDE) UNKNOWN [Suspect]
     Active Substance: ZONISAMIDE

REACTIONS (1)
  - Drug reaction with eosinophilia and systemic symptoms [None]
